FAERS Safety Report 17768845 (Version 1)
Quarter: 2020Q2

REPORT INFORMATION
  Report Type: Spontaneous
  Country: GB (occurrence: GB)
  Receive Date: 20200512
  Receipt Date: 20200512
  Transmission Date: 20200714
  Serious: Yes (Hospitalization)
  Sender: FDA-Public Use
  Company Number: GB-TEVA-2020-GB-1234674

PATIENT
  Sex: Male

DRUGS (1)
  1. EMTRICITABINE W/TENOFOVIR [Suspect]
     Active Substance: EMTRICITABINE\TENOFOVIR DISOPROXIL
     Dosage: 200/245MG AND 600MG TABLETS ONCE DAILY

REACTIONS (1)
  - SARS-CoV-2 test positive [Recovered/Resolved]
